FAERS Safety Report 5940957-0 (Version None)
Quarter: 2008Q4

REPORT INFORMATION
  Report Type: 
  Country: None (occurrence: None)
  Receive Date: 20081104
  Receipt Date: 20081027
  Transmission Date: 20090506
  Serious: Yes (Other)
  Sender: FDA-Public Use
  Company Number: US-ELI_LILLY_AND_COMPANY-US200810000490

PATIENT
  Sex: Female

DRUGS (4)
  1. BYETTA [Suspect]
     Dosage: 10 UG, UNKNOWN
     Dates: start: 20051101, end: 20070501
  2. FORTAMET [Concomitant]
     Dosage: 500 MG, UNKNOWN
  3. ORAL ANTIDIABETICS [Concomitant]
     Dosage: 100 MG, UNKNOWN
     Dates: start: 20061130
  4. VITAMIN D [Concomitant]
     Dosage: 50000 IU, UNKNOWN
     Dates: start: 20040101

REACTIONS (1)
  - BREAST CANCER [None]
